FAERS Safety Report 22640748 (Version 2)
Quarter: 2025Q4

REPORT INFORMATION
  Report Type: Spontaneous
  Country: CA (occurrence: CA)
  Receive Date: 20230626
  Receipt Date: 20251110
  Transmission Date: 20260118
  Serious: Yes (Hospitalization)
  Sender: CELLTRION
  Company Number: CA-CELLTRION INC.-2023CA012840

PATIENT

DRUGS (8)
  1. INFLIXIMAB [Suspect]
     Active Substance: INFLIXIMAB
     Indication: Crohn^s disease
     Dosage: 500 MG
     Route: 042
  2. INFLIXIMAB [Suspect]
     Active Substance: INFLIXIMAB
     Dosage: 500 MG
     Route: 042
  3. INFLIXIMAB [Suspect]
     Active Substance: INFLIXIMAB
     Dosage: 500 MG
     Route: 042
  4. INFLIXIMAB [Suspect]
     Active Substance: INFLIXIMAB
     Dosage: 700 MG
     Route: 042
  5. INFLECTRA [Suspect]
     Active Substance: INFLIXIMAB-DYYB
     Indication: Crohn^s disease
     Dosage: 500 MG, EVERY 6 WEEKS
     Route: 042
     Dates: start: 20220618
  6. INFLECTRA [Suspect]
     Active Substance: INFLIXIMAB-DYYB
     Dosage: 500 MG, EVERY 6 WEEKS
     Route: 042
     Dates: start: 20230415
  7. INFLECTRA [Suspect]
     Active Substance: INFLIXIMAB-DYYB
     Dosage: 500 MG, EVERY 6 WEEKS
     Route: 042
     Dates: start: 20250214
  8. INFLECTRA [Suspect]
     Active Substance: INFLIXIMAB-DYYB
     Dosage: 700 MG, EVERY 6 WEEKS
     Route: 042
     Dates: start: 20250328

REACTIONS (3)
  - Condition aggravated [Not Recovered/Not Resolved]
  - Cellulitis [Not Recovered/Not Resolved]
  - Off label use [Not Recovered/Not Resolved]

NARRATIVE: CASE EVENT DATE: 20220618
